FAERS Safety Report 10154315 (Version 1)
Quarter: 2014Q2

REPORT INFORMATION
  Report Type: Spontaneous
  Country: CA (occurrence: None)
  Receive Date: 20140502
  Receipt Date: 20140502
  Transmission Date: 20141212
  Serious: Yes (Other)
  Sender: FDA-Public Use
  Company Number: INT_00378_2014

PATIENT
  Age: 50 Year
  Sex: Female

DRUGS (2)
  1. CISPLATIN [Suspect]
     Indication: NON-SMALL CELL LUNG CANCER
     Dosage: 75 MG/M2?(DAY 1 FOR 4 MONTHLY CYCLES)?INTRAVENOUS (NOT OTHERWISE SPECIFIED)
     Route: 042
  2. VINORELBINE [Concomitant]

REACTIONS (1)
  - Aortic thrombosis [None]
